FAERS Safety Report 12690457 (Version 2)
Quarter: 2016Q4

REPORT INFORMATION
  Report Type: Spontaneous
  Country: US (occurrence: US)
  Receive Date: 20160826
  Receipt Date: 20161003
  Transmission Date: 20170207
  Serious: No
  Sender: FDA-Public Use
  Company Number: US-PFIZER INC-2016401877

PATIENT
  Age: 32 Year
  Sex: Male

DRUGS (3)
  1. LYRICA [Suspect]
     Active Substance: PREGABALIN
     Indication: SEIZURE
     Dosage: 400 MG, 2X/DAY
     Dates: start: 2004
  2. DILANTIN [Concomitant]
     Active Substance: PHENYTOIN
     Dosage: 300 MG, 2X/DAY
  3. KEPPRA [Concomitant]
     Active Substance: LEVETIRACETAM
     Dosage: 2000 MG, 2X/DAY

REACTIONS (1)
  - Overdose [Unknown]
